FAERS Safety Report 4570530-0 (Version None)
Quarter: 2005Q1

REPORT INFORMATION
  Report Type: 
  Country: None (occurrence: None)
  Receive Date: 20050203
  Receipt Date: 20050203
  Transmission Date: 20050727
  Serious: No
  Sender: FDA-Public Use
  Company Number: None

PATIENT
  Age: 62 Year
  Sex: Male
  Weight: 72.5755 kg

DRUGS (1)
  1. PLAVIX [Suspect]
     Dosage: 75 DAILY
     Dates: start: 20040915, end: 20040921

REACTIONS (1)
  - RASH [None]
